FAERS Safety Report 20683396 (Version 2)
Quarter: 2022Q2

REPORT INFORMATION
  Report Type: Spontaneous
  Country: US (occurrence: US)
  Receive Date: 20220407
  Receipt Date: 20220516
  Transmission Date: 20220720
  Serious: Yes (Hospitalization, Other)
  Sender: FDA-Public Use
  Company Number: US-GLAXOSMITHKLINE-US2022059637

PATIENT

DRUGS (2)
  1. TRELEGY ELLIPTA [Suspect]
     Active Substance: FLUTICASONE FUROATE\UMECLIDINIUM BROMIDE\VILANTEROL TRIFENATATE
     Indication: Chronic obstructive pulmonary disease
     Dosage: UNK, BID, TRELEGY 100 1 BID
     Dates: start: 202203
  2. ADVAIR DISKUS [Suspect]
     Active Substance: FLUTICASONE PROPIONATE\SALMETEROL XINAFOATE
     Indication: Chronic obstructive pulmonary disease
     Dosage: 500 UG, BID
     Dates: start: 201901, end: 20220206

REACTIONS (7)
  - Cellulitis [Recovering/Resolving]
  - Urinary tract infection [Recovered/Resolved]
  - Chronic obstructive pulmonary disease [Recovered/Resolved]
  - Illness [Unknown]
  - Speech disorder [Unknown]
  - Emphysema [Unknown]
  - Diabetic wound [Unknown]

NARRATIVE: CASE EVENT DATE: 20220301
